FAERS Safety Report 21111697 (Version 2)
Quarter: 2022Q3

REPORT INFORMATION
  Report Type: Spontaneous
  Country: US (occurrence: US)
  Receive Date: 20220721
  Receipt Date: 20220825
  Transmission Date: 20221027
  Serious: Yes (Hospitalization, Other)
  Sender: FDA-Public Use
  Company Number: US-TAKEDA-2022TUS048672

PATIENT
  Age: 49 Year
  Sex: Male

DRUGS (9)
  1. VELCADE [Suspect]
     Active Substance: BORTEZOMIB
     Indication: Plasmacytoma
     Dosage: UNK
     Route: 065
     Dates: start: 20220404, end: 20220724
  2. VELCADE [Suspect]
     Active Substance: BORTEZOMIB
     Dosage: UNK
     Route: 065
     Dates: start: 20220725
  3. DEXAMETHASONE [Suspect]
     Active Substance: DEXAMETHASONE
     Indication: Plasmacytoma
     Dosage: UNK
     Route: 065
     Dates: start: 20220725
  4. CISPLATIN [Suspect]
     Active Substance: CISPLATIN
     Indication: Plasmacytoma
     Dosage: UNK
     Route: 065
  5. DOXORUBICIN [Suspect]
     Active Substance: DOXORUBICIN
     Indication: Plasmacytoma
     Dosage: UNK
     Route: 065
  6. CYCLOPHOSPHAMIDE [Suspect]
     Active Substance: CYCLOPHOSPHAMIDE
     Indication: Plasmacytoma
     Dosage: UNK
     Route: 065
  7. ETOPOSIDE [Suspect]
     Active Substance: ETOPOSIDE
     Indication: Plasmacytoma
     Dosage: UNK
     Route: 065
  8. SELINEXOR [Suspect]
     Active Substance: SELINEXOR
     Indication: Plasmacytoma
     Dosage: UNK
     Route: 065
     Dates: start: 20220404, end: 20220724
  9. ELOTUZUMAB [Suspect]
     Active Substance: ELOTUZUMAB
     Indication: Plasmacytoma
     Dosage: UNK
     Route: 065
     Dates: start: 20220725

REACTIONS (6)
  - Bone marrow failure [Unknown]
  - Sepsis [Unknown]
  - Plasma cell myeloma [Unknown]
  - Febrile neutropenia [Unknown]
  - Pyrexia [Unknown]
  - Serum ferritin increased [Unknown]
